FAERS Safety Report 5522258-8 (Version None)
Quarter: 2007Q4

REPORT INFORMATION
  Report Type: 
  Country: None (occurrence: None)
  Receive Date: 20071120
  Receipt Date: 20071119
  Transmission Date: 20080405
  Serious: Yes (Death, Hospitalization)
  Sender: FDA-Public Use
  Company Number: PHBS2007TW01500

PATIENT
  Age: 80 Year
  Sex: Female
  Weight: 64 kg

DRUGS (1)
  1. DIOVAN HCT [Suspect]
     Indication: HYPERTENSION
     Route: 048
     Dates: start: 20061030

REACTIONS (2)
  - CEREBROVASCULAR ACCIDENT [None]
  - PULMONARY OEDEMA [None]
